FAERS Safety Report 6393947-0 (Version None)
Quarter: 2009Q4

REPORT INFORMATION
  Report Type: 
  Country: None (occurrence: None)
  Receive Date: 20091008
  Receipt Date: 20090926
  Transmission Date: 20100525
  Serious: Yes (Other)
  Sender: FDA-Public Use
  Company Number: NL-PFIZER INC-2009275929

PATIENT

DRUGS (3)
  1. VIAGRA [Suspect]
     Indication: ERECTILE DYSFUNCTION
     Route: 048
  2. CIALIS [Suspect]
     Indication: ERECTILE DYSFUNCTION
  3. LEVITRA [Suspect]
     Indication: ERECTILE DYSFUNCTION

REACTIONS (2)
  - DRUG DEPENDENCE [None]
  - PSYCHOMOTOR HYPERACTIVITY [None]
